FAERS Safety Report 8472559-9 (Version None)
Quarter: 2012Q2

REPORT INFORMATION
  Report Type: 
  Country: None (occurrence: None)
  Receive Date: 20120627
  Receipt Date: 20120306
  Transmission Date: 20120825
  Serious: No
  Sender: FDA-Public Use
  Company Number: US-AMGEN-USASP2012003433

PATIENT

DRUGS (3)
  1. EPOGEN [Suspect]
     Indication: RENAL FAILURE CHRONIC
     Dosage: UNK UNK, QWK
  2. EPOGEN [Suspect]
     Dosage: UNK UNK, QWK
  3. EPOGEN [Suspect]
     Dosage: UNK UNK, QWK

REACTIONS (1)
  - DRUG INEFFECTIVE [None]
